FAERS Safety Report 11330429 (Version 1)
Quarter: 2015Q3

REPORT INFORMATION
  Report Type: Spontaneous
  Country: US (occurrence: None)
  Receive Date: 20150731
  Receipt Date: 20150731
  Transmission Date: 20151125
  Serious: Yes (Death)
  Sender: FDA-Public Use
  Company Number: None

PATIENT
  Age: 89 Year
  Sex: Male

DRUGS (1)
  1. ALTEPLASE [Suspect]
     Active Substance: ALTEPLASE
     Indication: CEREBROVASCULAR ACCIDENT
     Dosage: 57 MG TOTAL ONCE IV
     Route: 042
     Dates: start: 20141111, end: 20141111

REACTIONS (8)
  - Lip oedema [None]
  - Tachycardia [None]
  - Cerebral haemorrhage [None]
  - Subarachnoid haemorrhage [None]
  - Localised oedema [None]
  - Dyspnoea [None]
  - Angioedema [None]
  - Oxygen saturation decreased [None]

NARRATIVE: CASE EVENT DATE: 20141111
